FAERS Safety Report 9027772 (Version 5)
Quarter: 2013Q2

REPORT INFORMATION
  Report Type: Report from Study
  Country: US (occurrence: US)
  Receive Date: 20130124
  Receipt Date: 20130417
  Transmission Date: 20140414
  Serious: Yes (Life-Threatening)
  Sender: FDA-Public Use
  Company Number: US-JNJFOC-20130109836

PATIENT
  Age: 71 Year
  Sex: Female
  Weight: 60 kg

DRUGS (4)
  1. DOXORUBICIN HYDROCHLORIDE (DOXIL) [Suspect]
     Indication: OVARIAN CANCER
     Route: 042
     Dates: start: 20130111, end: 20130111
  2. LIPODOX [Suspect]
     Indication: OVARIAN CANCER
     Route: 042
     Dates: start: 20130111, end: 20130111
  3. TWINPAL [Concomitant]
     Indication: FEELING ABNORMAL
     Route: 065
     Dates: start: 20130111
  4. B 12 TABLETS [Concomitant]
     Indication: NUTRITIONAL SUPPLEMENTATION
     Route: 065

REACTIONS (4)
  - Anaphylactic reaction [Recovered/Resolved]
  - Convulsion [Recovered/Resolved]
  - Fatigue [Unknown]
  - Back pain [Recovered/Resolved]
